FAERS Safety Report 5806245-8 (Version None)
Quarter: 2008Q3

REPORT INFORMATION
  Report Type: 
  Country: None (occurrence: None)
  Receive Date: 20080710
  Receipt Date: 20070926
  Transmission Date: 20090109
  Serious: Yes (Hospitalization)
  Sender: FDA-Public Use
  Company Number: GB-ABBOTT-01P-163-0186925-00

PATIENT
  Age: 75 Year
  Sex: Female

DRUGS (6)
  1. ERYTHROMYCIN BASE FILMTAB 250MG [Suspect]
     Indication: URINARY TRACT INFECTION
     Route: 048
  2. ERYTHROMYCIN BASE FILMTAB 250MG [Suspect]
     Indication: PROPHYLAXIS
     Route: 048
  3. CARBIMAZOLE (NON-KNOLL PRODUCT) [Interacting]
     Indication: HYPERTHYROIDISM
  4. DIGOXIN [Concomitant]
     Indication: DRUG USE FOR UNKNOWN INDICATION
  5. FUROSEMIDE [Concomitant]
     Indication: DRUG USE FOR UNKNOWN INDICATION
  6. WARFARIN SODIUM [Concomitant]
     Indication: DRUG USE FOR UNKNOWN INDICATION

REACTIONS (6)
  - BLOOD MAGNESIUM DECREASED [None]
  - DRUG INTERACTION [None]
  - ELECTROCARDIOGRAM QT PROLONGED [None]
  - HYPOTHYROIDISM [None]
  - PRESYNCOPE [None]
  - TORSADE DE POINTES [None]
